FAERS Safety Report 7679320-3 (Version None)
Quarter: 2011Q3

REPORT INFORMATION
  Report Type: 
  Country: None (occurrence: None)
  Receive Date: 20110808
  Receipt Date: 20110726
  Transmission Date: 20111222
  Serious: Yes (Other)
  Sender: FDA-Public Use
  Company Number: 2011SP035273

PATIENT
  Sex: Female

DRUGS (2)
  1. INFERGEN [Suspect]
     Indication: HEPATITIS C
  2. RIBAVIRIN [Suspect]
     Indication: HEPATITIS C
     Dates: start: 20080508, end: 20090617

REACTIONS (5)
  - HEPATITIS C RNA INCREASED [None]
  - MEMORY IMPAIRMENT [None]
  - DEHYDRATION [None]
  - ANAEMIA [None]
  - NO THERAPEUTIC RESPONSE [None]
